FAERS Safety Report 4933139-2 (Version None)
Quarter: 2006Q1

REPORT INFORMATION
  Report Type: 
  Country: None (occurrence: None)
  Receive Date: 20060118
  Receipt Date: 20051112
  Transmission Date: 20060701
  Serious: Yes (Other)
  Sender: FDA-Public Use
  Company Number: US-JNJFOC-20051103555

PATIENT
  Age: 52 Year
  Sex: Female

DRUGS (3)
  1. DOXIL [Suspect]
     Indication: ADRENAL CARCINOMA
     Dosage: 2 CYCLES
  2. VINCRISTINE [Concomitant]
  3. TARIQUIDAR (ANTINEOPLASTIC AGENTS) [Concomitant]

REACTIONS (1)
  - ADRENAL GLAND CANCER METASTATIC [None]
